FAERS Safety Report 4840495-2 (Version None)
Quarter: 2005Q4

REPORT INFORMATION
  Report Type: 
  Country: None (occurrence: None)
  Receive Date: 20051130
  Receipt Date: 20050822
  Transmission Date: 20060501
  Serious: Yes (Other)
  Sender: FDA-Public Use
  Company Number: US-BRISTOL-MYERS SQUIBB COMPANY-13086020

PATIENT
  Sex: Male

DRUGS (2)
  1. ERBITUX [Suspect]
     Indication: COLON CANCER
     Dosage: INTERRUPTED (DATE NOT REPORTED).  RESTARTED ON 22-AUG-2005.
     Route: 042
  2. IRINOTECAN HCL [Concomitant]

REACTIONS (4)
  - DRY SKIN [None]
  - PRURITUS [None]
  - RASH [None]
  - SKIN EXFOLIATION [None]
